FAERS Safety Report 13865727 (Version 1)
Quarter: 2017Q3

REPORT INFORMATION
  Report Type: Spontaneous
  Country: FR (occurrence: FR)
  Receive Date: 20170814
  Receipt Date: 20170814
  Transmission Date: 20171127
  Serious: Yes (Hospitalization, Other)
  Sender: FDA-Public Use
  Company Number: FR-SA-2016SA099307

PATIENT
  Age: 42 Year
  Sex: Male

DRUGS (4)
  1. RANITIDINE. [Suspect]
     Active Substance: RANITIDINE
     Indication: GASTROOESOPHAGEAL REFLUX DISEASE
     Route: 048
  2. SPIRONOLACTONE. [Concomitant]
     Active Substance: SPIRONOLACTONE
     Indication: CIRRHOSIS ALCOHOLIC
     Route: 065
  3. FUROSEMIDE. [Concomitant]
     Active Substance: FUROSEMIDE
     Indication: CIRRHOSIS ALCOHOLIC
     Route: 065
  4. NORFLOXACIN [Concomitant]
     Active Substance: NORFLOXACIN
     Indication: PERITONITIS
     Route: 065

REACTIONS (14)
  - Disorganised speech [Recovered/Resolved]
  - Hallucination [Recovered/Resolved]
  - Mania [Recovered/Resolved]
  - Obsessive-compulsive disorder [Recovered/Resolved]
  - Delirium [Recovered/Resolved]
  - Psychomotor hyperactivity [Recovered/Resolved]
  - Tachyphrenia [Recovered/Resolved]
  - Speech disorder [Recovered/Resolved]
  - Logorrhoea [Recovered/Resolved]
  - Disinhibition [Recovered/Resolved]
  - Persecutory delusion [Recovering/Resolving]
  - Insomnia [Recovered/Resolved]
  - Dysarthria [Recovered/Resolved]
  - Headache [Recovered/Resolved]
